FAERS Safety Report 4716110-5 (Version None)
Quarter: 2005Q2

REPORT INFORMATION
  Report Type: 
  Country: None (occurrence: None)
  Receive Date: 20050630
  Receipt Date: 20050103
  Transmission Date: 20051028
  Serious: Yes (Hospitalization)
  Sender: FDA-Public Use
  Company Number: USA050187321

PATIENT
  Age: 6 Year
  Sex: Male

DRUGS (3)
  1. HUMALOG [Suspect]
     Dates: start: 20030101
  2. HUMULIN N [Suspect]
     Dates: start: 20030101
  3. LANTUS [Concomitant]

REACTIONS (4)
  - BLOOD GLUCOSE INCREASED [None]
  - DRUG INEFFECTIVE [None]
  - NASOPHARYNGITIS [None]
  - VOMITING [None]
